FAERS Safety Report 20375372 (Version 1)
Quarter: 2022Q1

REPORT INFORMATION
  Report Type: Spontaneous
  Country: SG (occurrence: SG)
  Receive Date: 20220125
  Receipt Date: 20220125
  Transmission Date: 20220423
  Serious: Yes (Other)
  Sender: FDA-Public Use
  Company Number: SG-UNIQUE PHARMACEUTICAL LABORATORIES-20220100003

PATIENT
  Age: 65 Year
  Sex: Female

DRUGS (1)
  1. FLUCONAZOLE [Suspect]
     Active Substance: FLUCONAZOLE
     Indication: Candida endophthalmitis
     Dosage: 400MG/DAILY (6MG/KG)
     Route: 048

REACTIONS (3)
  - Choroidal effusion [Recovering/Resolving]
  - Hypotony of eye [Not Recovered/Not Resolved]
  - Drug ineffective for unapproved indication [Unknown]
